FAERS Safety Report 10483235 (Version 2)
Quarter: 2014Q4

REPORT INFORMATION
  Report Type: Report from Study
  Country: US (occurrence: US)
  Receive Date: 20140930
  Receipt Date: 20141031
  Transmission Date: 20150528
  Serious: Yes (Other)
  Sender: FDA-Public Use
  Company Number: US-BIOGENIDEC-2014BI097413

PATIENT
  Sex: Female

DRUGS (14)
  1. TECFIDERA [Suspect]
     Active Substance: DIMETHYL FUMARATE
     Indication: RELAPSING-REMITTING MULTIPLE SCLEROSIS
     Route: 048
     Dates: start: 201312, end: 201406
  2. CYANOCOBALAMINE [Concomitant]
     Route: 060
  3. CITALOPRAM [Concomitant]
     Active Substance: CITALOPRAM HYDROBROMIDE
  4. FLUOXETINE [Concomitant]
     Active Substance: FLUOXETINE\FLUOXETINE HYDROCHLORIDE
  5. BACLOFEN. [Concomitant]
     Active Substance: BACLOFEN
  6. VITAMIN D [Concomitant]
     Active Substance: CHOLECALCIFEROL
  7. BACLOFEN. [Concomitant]
     Active Substance: BACLOFEN
  8. BACLOFEN. [Concomitant]
     Active Substance: BACLOFEN
  9. CHOLECALCIFEROL [Concomitant]
     Active Substance: CHOLECALCIFEROL
     Route: 048
  10. CITALOPRAM [Concomitant]
     Active Substance: CITALOPRAM HYDROBROMIDE
  11. TECFIDERA [Suspect]
     Active Substance: DIMETHYL FUMARATE
     Indication: RELAPSING-REMITTING MULTIPLE SCLEROSIS
     Dates: start: 20131104
  12. CALCIUM/VITAMIN D/VITAMIN K [Concomitant]
     Route: 048
  13. KEPPRA [Concomitant]
     Active Substance: LEVETIRACETAM
     Indication: SEIZURE
     Route: 048
  14. POTASSIUM ACETATE. [Concomitant]
     Active Substance: POTASSIUM ACETATE
     Route: 048

REACTIONS (22)
  - Drug ineffective [Recovered/Resolved]
  - Malaise [Unknown]
  - Apathy [Not Recovered/Not Resolved]
  - Alanine aminotransferase increased [Unknown]
  - Depression [Unknown]
  - Haemorrhagic diathesis [Unknown]
  - Cognitive disorder [Not Recovered/Not Resolved]
  - Fatigue [Unknown]
  - Headache [Unknown]
  - Feeling abnormal [Recovered/Resolved]
  - Dizziness [Unknown]
  - Middle insomnia [Unknown]
  - Contusion [Unknown]
  - Multiple sclerosis [Not Recovered/Not Resolved]
  - Hypoaesthesia [Recovered/Resolved]
  - Gait disturbance [Recovered/Resolved]
  - Back pain [Unknown]
  - Asthenia [Unknown]
  - Anxiety [Unknown]
  - Aspartate aminotransferase increased [Unknown]
  - Nervousness [Unknown]
  - Gait spastic [Not Recovered/Not Resolved]
